FAERS Safety Report 7349042-7 (Version None)
Quarter: 2011Q1

REPORT INFORMATION
  Report Type: 
  Country: None (occurrence: None)
  Receive Date: 20110303
  Receipt Date: 20110217
  Transmission Date: 20110831
  Serious: Yes (Hospitalization)
  Sender: FDA-Public Use
  Company Number: DSA_45029_2011

PATIENT
  Age: 66 Year
  Sex: Male

DRUGS (3)
  1. LOVENOX [Concomitant]
  2. RENITEC /00574902/ (RENITEC-ENALAPRIL MALEATE) 20 MG (NOT SPECIFIED) [Suspect]
     Indication: HYPERTENSION
     Dosage: 20 MG QD ORAL
     Route: 048
     Dates: start: 20101122, end: 20101129
  3. ENALAPRIL EG (ENALAPRIL EG - ENALAPRIL MATEATE) 20 MG (NOT SPECIFIED) [Suspect]
     Indication: HYPERTENSION
     Dosage: 20 MG QD ORAL
     Route: 048
     Dates: start: 20101110, end: 20101121

REACTIONS (3)
  - PRURITUS [None]
  - ECZEMA [None]
  - RASH MACULO-PAPULAR [None]
